FAERS Safety Report 5412294-4 (Version None)
Quarter: 2007Q3

REPORT INFORMATION
  Report Type: 
  Country: None (occurrence: None)
  Receive Date: 20070713
  Receipt Date: 20070520
  Transmission Date: 20080115
  Serious: No
  Sender: FDA-Public Use
  Company Number: 2007SP001917

PATIENT
  Age: 59 Year
  Sex: Male
  Weight: 81.6475 kg

DRUGS (4)
  1. LUNESTA [Suspect]
     Indication: INSOMNIA
     Dosage: 2 MG;ORAL  2 MG;ORAL 4 MG;ORAL 3 MG;ORAL 3 MG;ORAL 6 MG;ORAL 9 MG;ORAL
     Route: 048
     Dates: start: 20070101, end: 20070423
  2. LUNESTA [Suspect]
     Indication: INSOMNIA
     Dosage: 2 MG;ORAL  2 MG;ORAL 4 MG;ORAL 3 MG;ORAL 3 MG;ORAL 6 MG;ORAL 9 MG;ORAL
     Route: 048
     Dates: start: 20060901
  3. OXYCONTIN [Concomitant]
  4. PERCOCET [Concomitant]

REACTIONS (1)
  - INSOMNIA [None]
